FAERS Safety Report 19414786 (Version 1)
Quarter: 2021Q2

REPORT INFORMATION
  Report Type: Spontaneous
  Country: US (occurrence: US)
  Receive Date: 20210614
  Receipt Date: 20210614
  Transmission Date: 20210717
  Serious: Yes (Hospitalization, Other)
  Sender: FDA-Public Use
  Company Number: US-GLAXOSMITHKLINE-US2021GSK124619

PATIENT
  Age: 67 Year
  Sex: Female

DRUGS (7)
  1. VELETRI [Suspect]
     Active Substance: EPOPROSTENOL
     Indication: PULMONARY ARTERIAL HYPERTENSION
     Dosage: 44 NG/KG, Z(PER MINUTE)
     Route: 042
  2. VELETRI [Suspect]
     Active Substance: EPOPROSTENOL
     Dosage: 22 NG/KG, Z (PER MINUTE)
  3. VELETRI [Suspect]
     Active Substance: EPOPROSTENOL
     Dosage: 44 NG/KG, Z (PER MIN)
  4. GABAPENTIN. [Concomitant]
     Active Substance: GABAPENTIN
     Indication: NEUROPATHY PERIPHERAL
     Dosage: 100 MG, TID
  5. FUROSEMIDE. [Concomitant]
     Active Substance: FUROSEMIDE
     Indication: PRODUCT USED FOR UNKNOWN INDICATION
     Dosage: 20 MG, 1D
  6. OMEPRAZOLE. [Concomitant]
     Active Substance: OMEPRAZOLE
     Indication: GASTROOESOPHAGEAL REFLUX DISEASE
     Dosage: 40 MG, 1D
  7. HYDROCORTISONE. [Concomitant]
     Active Substance: HYDROCORTISONE
     Indication: PRODUCT USED FOR UNKNOWN INDICATION
     Dosage: 10 MG, Z EVERY 12 HRS

REACTIONS (19)
  - Withdrawal syndrome [Recovered/Resolved]
  - Hypoxia [Recovered/Resolved]
  - Ventricular hypokinesia [Recovered/Resolved]
  - Right atrial enlargement [Recovered/Resolved]
  - Coronary artery disease [Unknown]
  - Rash erythematous [Unknown]
  - Device malfunction [Recovered/Resolved]
  - Stress cardiomyopathy [Recovered/Resolved]
  - Ejection fraction decreased [Recovering/Resolving]
  - Ventricular dyssynchrony [Not Recovered/Not Resolved]
  - Hypotension [Recovered/Resolved]
  - Device alarm issue [Unknown]
  - Cardiogenic shock [Recovered/Resolved]
  - Electrocardiogram QT prolonged [Recovered/Resolved]
  - Electrocardiogram T wave inversion [Recovered/Resolved]
  - Coronary artery stenosis [Unknown]
  - Right ventricular enlargement [Recovering/Resolving]
  - Tricuspid valve incompetence [Unknown]
  - Right ventricular hypertrophy [Recovered/Resolved]
